FAERS Safety Report 5055217-2 (Version None)
Quarter: 2006Q3

REPORT INFORMATION
  Report Type: 
  Country: None (occurrence: None)
  Receive Date: 20060714
  Receipt Date: 20060705
  Transmission Date: 20061208
  Serious: Yes (Hospitalization)
  Sender: FDA-Public Use
  Company Number: E2020-00219-SPO-FR

PATIENT
  Age: 84 Year
  Sex: Female

DRUGS (10)
  1. ARICEPT [Suspect]
     Indication: DEMENTIA ALZHEIMER'S TYPE
     Dosage: 1J, ORAL
     Route: 048
  2. MEPROBAMATE (EQUANIL) (MEPROBAMATE) [Concomitant]
  3. LEVODOPA BENZERASIDE (MODOPAR) [Concomitant]
  4. LEVOTHYROXIN (LEVOTHYROX) (LEVOTHYROXINE SODIUM) [Concomitant]
  5. NIFEDIPINE (CHRONADALATE) (NIFEDIPINE) [Concomitant]
  6. MEMANTINE (EBIXA) (MEMANTINE HYDROCHLORIDE) [Concomitant]
  7. ALPHA TOCOPHEROL (TOCO 500) (TOCOPHEROL) [Concomitant]
  8. DOMPERIDONE (DOMPERIDONE) [Concomitant]
  9. AMOXICILLIN [Concomitant]
  10. HEALTH FOOD (CLINUTREN) [Concomitant]

REACTIONS (5)
  - ASTHENIA [None]
  - GENERAL PHYSICAL HEALTH DETERIORATION [None]
  - HYPOTHERMIA [None]
  - OVERDOSE [None]
  - SOMNOLENCE [None]
